FAERS Safety Report 12310912 (Version 1)
Quarter: 2016Q2

REPORT INFORMATION
  Report Type: Report from Study
  Country: TW (occurrence: TW)
  Receive Date: 20160427
  Receipt Date: 20160427
  Transmission Date: 20160815
  Serious: Yes (Hospitalization, Other)
  Sender: FDA-Public Use
  Company Number: TW-REGENERON PHARMACEUTICALS, INC.-2015-11878

PATIENT

DRUGS (7)
  1. VISUDYNE [Suspect]
     Active Substance: VERTEPORFIN
     Indication: POLYPOIDAL CHOROIDAL VASCULOPATHY
  2. DIFENIDOL HYDROCHLORIDE [Concomitant]
     Active Substance: DIPHENIDOL HYDROCHLORIDE
     Indication: VERTIGO
     Dosage: 25 MG, ONCE
     Route: 048
     Dates: start: 20150525, end: 20150525
  3. EYLEA [Suspect]
     Active Substance: AFLIBERCEPT
     Indication: POLYPOIDAL CHOROIDAL VASCULOPATHY
     Dosage: 2 MG, ONCE, BASELINE (WEEK 0)
     Route: 031
     Dates: start: 20150209, end: 20150209
  4. EYLEA [Suspect]
     Active Substance: AFLIBERCEPT
     Dosage: 2 MG, ONCE, RUN-IN (WEEK 8)
     Route: 031
     Dates: start: 20150407, end: 20150407
  5. DIAZEPAM. [Concomitant]
     Active Substance: DIAZEPAM
     Indication: VERTIGO
     Dosage: 2 MG, ONCE
     Route: 048
     Dates: start: 20150525, end: 20150525
  6. EYLEA [Suspect]
     Active Substance: AFLIBERCEPT
     Dosage: 2 MG, ONCE, TREATMENT (WEEK 16)
     Route: 031
     Dates: start: 20150602, end: 20150602
  7. EYLEA [Suspect]
     Active Substance: AFLIBERCEPT
     Dosage: 2 MG, ONCE, RUN-IN (WEEK 4)
     Route: 031
     Dates: start: 20150310, end: 20150310

REACTIONS (1)
  - Angina unstable [Recovered/Resolved]

NARRATIVE: CASE EVENT DATE: 20150720
